FAERS Safety Report 7378141-9 (Version None)
Quarter: 2011Q1

REPORT INFORMATION
  Report Type: 
  Country: None (occurrence: None)
  Receive Date: 20110328
  Receipt Date: 20110315
  Transmission Date: 20110831
  Serious: Yes (Other)
  Sender: FDA-Public Use
  Company Number: US-JNJFOC-20110309978

PATIENT
  Age: 49 Year
  Sex: Male

DRUGS (2)
  1. KETOCONAZOLE [Suspect]
     Indication: PROSTATE CANCER
     Route: 065
  2. LOVASTATIN [Interacting]
     Indication: PROSTATE CANCER
     Route: 065

REACTIONS (6)
  - RHABDOMYOLYSIS [None]
  - OFF LABEL USE [None]
  - ALANINE AMINOTRANSFERASE INCREASED [None]
  - DRUG INTERACTION [None]
  - OVERDOSE [None]
  - ASPARTATE AMINOTRANSFERASE INCREASED [None]
